FAERS Safety Report 11536905 (Version 1)
Quarter: 2015Q3

REPORT INFORMATION
  Report Type: Spontaneous
  Country: US (occurrence: None)
  Receive Date: 20150921
  Receipt Date: 20150921
  Transmission Date: 20151125
  Serious: Yes (Hospitalization)
  Sender: FDA-Public Use
  Company Number: None

PATIENT
  Age: 24 Year
  Sex: Female
  Weight: 40.82 kg

DRUGS (1)
  1. CIPROFLOXACIN. [Suspect]
     Active Substance: CIPROFLOXACIN
     Indication: CERVICITIS
     Dosage: 1 PILL
     Route: 048
     Dates: start: 20150918, end: 20150918

REACTIONS (7)
  - Dysphagia [None]
  - Anaphylactic reaction [None]
  - Pruritus [None]
  - Dyspnoea [None]
  - Speech disorder [None]
  - Swelling face [None]
  - Sneezing [None]

NARRATIVE: CASE EVENT DATE: 20150918
